FAERS Safety Report 7631282-0 (Version None)
Quarter: 2011Q3

REPORT INFORMATION
  Report Type: 
  Country: None (occurrence: None)
  Receive Date: 20110715
  Receipt Date: 20110630
  Transmission Date: 20111222
  Serious: Yes (Death)
  Sender: FDA-Public Use
  Company Number: TPA2011A02064

PATIENT
  Age: 34 Year
  Sex: Male
  Weight: 171.4597 kg

DRUGS (5)
  1. ALTACE [Concomitant]
  2. DEPO-TESTOSTERONE [Concomitant]
  3. ACTOPLUS MET [Suspect]
     Indication: GLUCOSE TOLERANCE IMPAIRED
     Dosage: 15/850, BID, PER ORAL
     Route: 048
     Dates: start: 20090529
  4. VITAMIN D [Concomitant]
  5. NORVASC [Concomitant]

REACTIONS (1)
  - DEATH [None]
